FAERS Safety Report 20525675 (Version 1)
Quarter: 2022Q1

REPORT INFORMATION
  Report Type: Spontaneous
  Country: US (occurrence: None)
  Receive Date: 20220226
  Receipt Date: 20220226
  Transmission Date: 20220423
  Serious: Yes (Life-Threatening, Disabling, Other)
  Sender: FDA-Public Use
  Company Number: None

PATIENT
  Age: 42 Year
  Sex: Female
  Weight: 74.84 kg

DRUGS (2)
  1. .DELTA.8-TETRAHYDROCANNABINOL\HERBALS [Suspect]
     Active Substance: .DELTA.8-TETRAHYDROCANNABINOL\HERBALS
     Indication: Insomnia
     Dosage: OTHER QUANTITY : 1-2 TABLETS;?OTHER FREQUENCY : NIGHTLY;?
     Route: 048
     Dates: start: 20210201, end: 20210917
  2. .DELTA.8-TETRAHYDROCANNABINOL\HERBALS [Suspect]
     Active Substance: .DELTA.8-TETRAHYDROCANNABINOL\HERBALS
     Indication: Anxiety disorder
     Dosage: OTHER FREQUENCY : UP TO 5 DAILY;?
     Route: 048
     Dates: start: 20210201, end: 20210917

REACTIONS (4)
  - Transient ischaemic attack [None]
  - Musculoskeletal discomfort [None]
  - Vomiting [None]
  - Hypersomnia [None]

NARRATIVE: CASE EVENT DATE: 20210920
